FAERS Safety Report 20963526 (Version 1)
Quarter: 2022Q2

REPORT INFORMATION
  Report Type: Spontaneous
  Country: US (occurrence: US)
  Receive Date: 20220615
  Receipt Date: 20220615
  Transmission Date: 20220720
  Serious: No
  Sender: FDA-Public Use
  Company Number: US-HORIZON THERAPEUTICS-HZN-2022-002094

PATIENT
  Sex: Female

DRUGS (2)
  1. RAYOS [Suspect]
     Active Substance: PREDNISONE
     Indication: Adrenal insufficiency
     Dosage: 1 MG, 4 TABLETS PO QD (4MG)
     Route: 048
  2. RAYOS [Suspect]
     Active Substance: PREDNISONE
     Dosage: 5 MG, 5 TABLETS PO QD (25MG)
     Route: 048

REACTIONS (3)
  - Adverse event [Unknown]
  - Malaise [Unknown]
  - Insomnia [Unknown]
